FAERS Safety Report 6064908-6 (Version None)
Quarter: 2009Q1

REPORT INFORMATION
  Report Type: 
  Country: None (occurrence: None)
  Receive Date: 20090203
  Receipt Date: 20090203
  Transmission Date: 20090719
  Serious: No
  Sender: FDA-Public Use
  Company Number: None

PATIENT
  Age: 54 Year
  Sex: Male
  Weight: 81.6475 kg

DRUGS (8)
  1. CYCLOSPORINE [Suspect]
     Indication: GLOMERULONEPHRITIS MEMBRANOUS
     Dosage: 1 CAPSULE TWICE A DAY
     Dates: start: 20080113, end: 20090113
  2. TARKA [Concomitant]
  3. MICARDIS [Concomitant]
  4. PREDNISONE [Concomitant]
  5. DOXAZOSIN MESYLATE [Concomitant]
  6. LOVAZA [Concomitant]
  7. SIMVASTATIN [Concomitant]
  8. CLONAZEPAM [Concomitant]

REACTIONS (3)
  - DRUG LEVEL DECREASED [None]
  - DRUG LEVEL INCREASED [None]
  - PRODUCT QUALITY ISSUE [None]
